FAERS Safety Report 6830658-9 (Version None)
Quarter: 2010Q3

REPORT INFORMATION
  Report Type: 
  Country: None (occurrence: None)
  Receive Date: 20100712
  Receipt Date: 20100628
  Transmission Date: 20110219
  Serious: Yes (Other)
  Sender: FDA-Public Use
  Company Number: US-BAYER-200937373NA

PATIENT
  Age: 39 Year
  Sex: Female
  Weight: 65 kg

DRUGS (19)
  1. YASMIN [Suspect]
     Indication: CONTRACEPTION
     Route: 048
     Dates: start: 20010501, end: 20061125
  2. PROZAC [Concomitant]
     Indication: DEPRESSION
  3. XANAX [Concomitant]
     Indication: ANXIETY
  4. VICODIN [Concomitant]
     Indication: CHEST PAIN
  5. ADVAIR DISKUS 100/50 [Concomitant]
  6. SINGULAIR [Concomitant]
  7. ROXICET [Concomitant]
     Dosage: 5/325
     Dates: start: 20060110
  8. CYCLOBENZAPRINE [Concomitant]
     Dosage: UNIT DOSE: 10 MG
     Dates: start: 20060110
  9. DUACGELSTI [Concomitant]
     Dates: start: 20060110
  10. DUACGELSTI [Concomitant]
     Dates: start: 20060915
  11. DUACGELSTI [Concomitant]
     Dates: start: 20060409
  12. PATANOL [Concomitant]
     Dosage: AS USED: 0,1 %
     Dates: start: 20060614
  13. AMOXICILLIN AND CLAVULANATE POTASSIUM [Concomitant]
     Dosage: 875-125 MG
     Dates: start: 20060912
  14. ZYRTEC [Concomitant]
     Dosage: UNIT DOSE: 10 MG
     Dates: start: 20060912
  15. ZYRTEC [Concomitant]
     Dosage: UNIT DOSE: 10 MG
     Dates: start: 20070817
  16. FLUTICASONE [Concomitant]
     Dosage: UNIT DOSE: 50 MG
     Dates: start: 20060912
  17. FLUCONAZOLE [Concomitant]
     Dosage: UNIT DOSE: 150 MG
     Dates: start: 20061019
  18. FLUCONAZOLE [Concomitant]
     Dosage: UNIT DOSE: 150 MG
     Dates: start: 20061017
  19. FLUCONAZOLE [Concomitant]
     Dosage: UNIT DOSE: 150 MG
     Dates: start: 20060921

REACTIONS (7)
  - BRONCHIAL HYPERREACTIVITY [None]
  - CHEST DISCOMFORT [None]
  - CHEST PAIN [None]
  - COUGH [None]
  - DYSPNOEA [None]
  - PULMONARY EMBOLISM [None]
  - WHEEZING [None]
